FAERS Safety Report 24202357 (Version 6)
Quarter: 2024Q4

REPORT INFORMATION
  Report Type: Report from Study
  Country: US (occurrence: US)
  Receive Date: 20240813
  Receipt Date: 20241202
  Transmission Date: 20250115
  Serious: Yes (Hospitalization, Other)
  Sender: ABBVIE
  Company Number: US-ABBVIE-5875905

PATIENT
  Age: 46 Year
  Sex: Female
  Weight: 67 kg

DRUGS (5)
  1. SKYRIZI [Suspect]
     Active Substance: RISANKIZUMAB-RZAA
     Indication: Psoriasis
     Dosage: STRENGTH 360 MG/2.4 ML
     Route: 058
     Dates: start: 202410
  2. SKYRIZI [Suspect]
     Active Substance: RISANKIZUMAB-RZAA
     Indication: Crohn^s disease
     Dosage: WEEK 12, STRENGTH 360 MG/2.4 ML
     Route: 058
     Dates: start: 202408, end: 202408
  3. SKYRIZI [Suspect]
     Active Substance: RISANKIZUMAB-RZAA
     Indication: Crohn^s disease
     Dosage: FORM STRENGTH: 600 MG, WEEK 4
     Route: 042
     Dates: start: 20240416, end: 20240416
  4. SKYRIZI [Suspect]
     Active Substance: RISANKIZUMAB-RZAA
     Indication: Crohn^s disease
     Dosage: FORM STRENGTH: 600 MG, WEEK 8
     Route: 042
     Dates: start: 20240522, end: 20240522
  5. SKYRIZI [Suspect]
     Active Substance: RISANKIZUMAB-RZAA
     Indication: Crohn^s disease
     Dosage: WEEK 0, FORM STRENGTH: 600 MG
     Route: 042
     Dates: start: 20240319, end: 20240319

REACTIONS (13)
  - Appendicectomy [Recovering/Resolving]
  - Intestinal obstruction [Recovering/Resolving]
  - Constipation [Recovered/Resolved]
  - Crohn^s disease [Recovered/Resolved]
  - Nausea [Unknown]
  - Injection site swelling [Recovered/Resolved]
  - Cough [Unknown]
  - Abdominal discomfort [Unknown]
  - Flatulence [Not Recovered/Not Resolved]
  - Gastrointestinal sounds abnormal [Not Recovered/Not Resolved]
  - Stress [Unknown]
  - Abdominal distension [Not Recovered/Not Resolved]
  - Crohn^s disease [Unknown]

NARRATIVE: CASE EVENT DATE: 20240101
